FAERS Safety Report 17888816 (Version 1)
Quarter: 2020Q2

REPORT INFORMATION
  Report Type: Spontaneous
  Country: US (occurrence: US)
  Receive Date: 20200611
  Receipt Date: 20200611
  Transmission Date: 20200714
  Serious: Yes (Hospitalization)
  Sender: FDA-Public Use
  Company Number: None

PATIENT
  Sex: Female

DRUGS (24)
  1. AMOX/K CLAV [Concomitant]
     Active Substance: AMOXICILLIN\CLAVULANATE POTASSIUM
  2. CLINDAMYCIN. [Concomitant]
     Active Substance: CLINDAMYCIN
  3. ONDANSETRON [Concomitant]
     Active Substance: ONDANSETRON
  4. PREDNISONE. [Concomitant]
     Active Substance: PREDNISONE
  5. ATORVASTATIN [Concomitant]
     Active Substance: ATORVASTATIN
  6. HYDROCO/APAP [Concomitant]
     Active Substance: ACETAMINOPHEN\HYDROCODONE
  7. SOD CHLORIDE [Concomitant]
     Active Substance: SODIUM CHLORIDE
  8. DOXYCYC MONO [Concomitant]
     Active Substance: DOXYCYCLINE
  9. GABAPENTIN. [Concomitant]
     Active Substance: GABAPENTIN
  10. TRAZODONE [Concomitant]
     Active Substance: TRAZODONE HYDROCHLORIDE
  11. CIPROFLOXACN [Concomitant]
     Active Substance: CIPROFLOXACIN
  12. PREGABALIN. [Concomitant]
     Active Substance: PREGABALIN
  13. TRAVATAN Z [Concomitant]
     Active Substance: TRAVOPROST
  14. CEPHALEXIN. [Concomitant]
     Active Substance: CEPHALEXIN
  15. DOK [Concomitant]
     Active Substance: DOCUSATE SODIUM
  16. METHOCARBAM [Concomitant]
     Active Substance: METHOCARBAMOL
  17. COSENTYX [Suspect]
     Active Substance: SECUKINUMAB
     Indication: PSORIATIC ARTHROPATHY
     Route: 058
     Dates: start: 20180404
  18. APAP/CODEINE [Concomitant]
     Active Substance: ACETAMINOPHEN\CODEINE PHOSPHATE
  19. DULOXETINE. [Concomitant]
     Active Substance: DULOXETINE
  20. ZENPEP [Concomitant]
     Active Substance: PANCRELIPASE AMYLASE\PANCRELIPASE LIPASE\PANCRELIPASE PROTEASE
  21. ALPRAZOLAM. [Concomitant]
     Active Substance: ALPRAZOLAM
  22. IBUPROFEN. [Concomitant]
     Active Substance: IBUPROFEN
  23. LISINOPRIL AND HYDROCHLOROTHIAZIDE [Concomitant]
     Active Substance: HYDROCHLOROTHIAZIDE\LISINOPRIL
  24. OMEPRAZOLE. [Concomitant]
     Active Substance: OMEPRAZOLE

REACTIONS (2)
  - Neck surgery [None]
  - Therapy interrupted [None]
